FAERS Safety Report 5959434-6 (Version None)
Quarter: 2008Q4

REPORT INFORMATION
  Report Type: 
  Country: None (occurrence: None)
  Receive Date: 20081120
  Receipt Date: 20081008
  Transmission Date: 20090506
  Serious: No
  Sender: FDA-Public Use
  Company Number: A0750956A

PATIENT
  Age: 67 Year
  Sex: Female

DRUGS (6)
  1. VERAMYST [Suspect]
     Dosage: 1SPR PER DAY
     Route: 045
     Dates: start: 20060101
  2. SPIRIVA [Concomitant]
  3. SIMVASTATIN [Concomitant]
  4. VESICARE [Concomitant]
  5. BUSPIRONE HCL [Concomitant]
  6. LEXAPRO [Concomitant]

REACTIONS (4)
  - FALL [None]
  - INCREASED UPPER AIRWAY SECRETION [None]
  - PRURITUS [None]
  - WHEEZING [None]
